FAERS Safety Report 6010187-5 (Version None)
Quarter: 2008Q4

REPORT INFORMATION
  Report Type: 
  Country: None (occurrence: None)
  Receive Date: 20081218
  Receipt Date: 20081215
  Transmission Date: 20090506
  Serious: Yes (Other)
  Sender: FDA-Public Use
  Company Number: AU-BRISTOL-MYERS SQUIBB COMPANY-14443733

PATIENT
  Age: 67 Year
  Sex: Male

DRUGS (1)
  1. KARVEA TABS [Suspect]
     Route: 048

REACTIONS (2)
  - HEAT STROKE [None]
  - HYPOTENSION [None]
